FAERS Safety Report 6387151-X (Version None)
Quarter: 2009Q4

REPORT INFORMATION
  Report Type: 
  Country: None (occurrence: None)
  Receive Date: 20091002
  Receipt Date: 20090925
  Transmission Date: 20100525
  Serious: Yes (Other)
  Sender: FDA-Public Use
  Company Number: US-SANOFI-SYNTHELABO-A03200904356

PATIENT
  Sex: Female

DRUGS (2)
  1. AMBIEN [Suspect]
     Indication: INSOMNIA
     Route: 048
     Dates: start: 20070101, end: 20090101
  2. AMBIEN [Suspect]
     Dosage: TAKES 3/4 OF A 10 MG TABLET AT BEDTIME
     Route: 048
     Dates: start: 20090101

REACTIONS (5)
  - ATRIAL FIBRILLATION [None]
  - DRUG DEPENDENCE [None]
  - MEMORY IMPAIRMENT [None]
  - SOMNOLENCE [None]
  - WRONG TECHNIQUE IN DRUG USAGE PROCESS [None]
